FAERS Safety Report 10089163 (Version 1)
Quarter: 2014Q2

REPORT INFORMATION
  Report Type: Spontaneous
  Country: US (occurrence: None)
  Receive Date: 20140418
  Receipt Date: 20140418
  Transmission Date: 20141212
  Serious: Yes (Other)
  Sender: FDA-Public Use
  Company Number: None

PATIENT
  Age: 23 Year
  Sex: Female
  Weight: 63.5 kg

DRUGS (1)
  1. LAMOTRIGINE 200 MG, 50 MG, 25 MG TEVA, AUROBINDO, NORTHSTAR [Suspect]
     Indication: BIPOLAR II DISORDER
     Route: 048
     Dates: start: 20130104, end: 20140417

REACTIONS (9)
  - Haemorrhage [None]
  - Acne [None]
  - Menstrual disorder [None]
  - Skin disorder [None]
  - Acne [None]
  - Acne [None]
  - Skin exfoliation [None]
  - Sleep disorder [None]
  - Mouth ulceration [None]
